FAERS Safety Report 9131823 (Version 1)
Quarter: 2013Q1

REPORT INFORMATION
  Report Type: Report from Study
  Country: US (occurrence: US)
  Receive Date: 20130301
  Receipt Date: 20130301
  Transmission Date: 20140127
  Serious: No
  Sender: FDA-Public Use
  Company Number: US-MYLANLABS-2012S1016007

PATIENT
  Age: 50 Year
  Sex: Female
  Weight: 70.31 kg

DRUGS (2)
  1. AMNESTEEM CAPSULES [Suspect]
     Indication: ROSACEA
     Route: 048
     Dates: end: 201207
  2. AMNESTEEM CAPSULES [Suspect]
     Indication: SEBACEOUS HYPERPLASIA
     Route: 048
     Dates: end: 201207

REACTIONS (2)
  - Nasopharyngitis [Not Recovered/Not Resolved]
  - Influenza [Not Recovered/Not Resolved]
